FAERS Safety Report 6252247-X (Version None)
Quarter: 2009Q2

REPORT INFORMATION
  Report Type: 
  Country: None (occurrence: None)
  Receive Date: 20090629
  Receipt Date: 20090615
  Transmission Date: 20091009
  Serious: Yes (Death, Hospitalization)
  Sender: FDA-Public Use
  Company Number: 09-065

PATIENT
  Age: 45 Year
  Sex: Female

DRUGS (4)
  1. CEFEPIME [Suspect]
     Indication: ESCHERICHIA BACTERAEMIA
     Dosage: 2 G EVERY 12 HOURS, IV
     Route: 042
  2. IMIPENEM (UNKNOWN MANUFACTUER) [Suspect]
     Indication: ESCHERICHIA BACTERAEMIA
  3. METRONIDAZOLE [Suspect]
     Indication: ESCHERICHIA BACTERAEMIA
  4. VANCOMYCIN [Suspect]
     Indication: ESCHERICHIA BACTERAEMIA

REACTIONS (1)
  - THERAPEUTIC RESPONSE DELAYED [None]
